FAERS Safety Report 15637539 (Version 1)
Quarter: 2018Q4

REPORT INFORMATION
  Report Type: Spontaneous
  Country: US (occurrence: US)
  Receive Date: 20181120
  Receipt Date: 20181120
  Transmission Date: 20190205
  Serious: No
  Sender: FDA-Public Use
  Company Number: US-JNJFOC-20180517668

PATIENT
  Age: 79 Year
  Sex: Female

DRUGS (17)
  1. VITAMIN B12 [Concomitant]
     Active Substance: CYANOCOBALAMIN
  2. SELENIUM [Concomitant]
     Active Substance: SELENIUM
  3. UBIDECARENONE [Concomitant]
     Active Substance: UBIDECARENONE
  4. FERREX 150 FORTE [Concomitant]
     Active Substance: CYANOCOBALAMIN\FOLIC ACID\IRON
  5. VITAMIN B6 [Concomitant]
     Active Substance: PYRIDOXINE HYDROCHLORIDE
  6. RESVERATROL [Concomitant]
     Active Substance: DIETARY SUPPLEMENT\RESVERATROL
  7. IMBRUVICA [Suspect]
     Active Substance: IBRUTINIB
     Indication: WALDENSTROM^S MACROGLOBULINAEMIA
     Route: 048
     Dates: start: 20151019
  8. BIOTIN [Concomitant]
     Active Substance: BIOTIN
  9. CENTRUM SILVER [Concomitant]
     Active Substance: MINERALS\VITAMINS
  10. GARLIC. [Concomitant]
     Active Substance: GARLIC
  11. MAGNESIUM [Concomitant]
     Active Substance: MAGNESIUM
  12. CAMELLIA SINENSIS [Concomitant]
     Active Substance: GREEN TEA LEAF
  13. LEVOCARNITINE. [Concomitant]
     Active Substance: LEVOCARNITINE
  14. LYSINE [Concomitant]
     Active Substance: LYSINE
  15. CALCIUM [Concomitant]
     Active Substance: CALCIUM
  16. VITAMIN C [Concomitant]
     Active Substance: ASCORBIC ACID
  17. ELEUTHEROCOCCUS SENTICOSUS [Concomitant]
     Active Substance: ELEUTHERO

REACTIONS (2)
  - Adverse event [Unknown]
  - Weight abnormal [Not Recovered/Not Resolved]

NARRATIVE: CASE EVENT DATE: 201510
